FAERS Safety Report 25278120 (Version 1)
Quarter: 2025Q2

REPORT INFORMATION
  Report Type: Spontaneous
  Country: US (occurrence: US)
  Receive Date: 20250507
  Receipt Date: 20250507
  Transmission Date: 20250716
  Serious: Yes (Hospitalization)
  Sender: MYLAN
  Company Number: US-MYLANLABS-2025M1038323

PATIENT
  Age: 3 Year
  Sex: Male

DRUGS (24)
  1. DEXAMETHASONE [Suspect]
     Active Substance: DEXAMETHASONE
     Indication: Asthma
  2. DEXAMETHASONE [Suspect]
     Active Substance: DEXAMETHASONE
     Route: 065
  3. DEXAMETHASONE [Suspect]
     Active Substance: DEXAMETHASONE
     Route: 065
  4. DEXAMETHASONE [Suspect]
     Active Substance: DEXAMETHASONE
  5. IPRATROPIUM [Suspect]
     Active Substance: IPRATROPIUM
     Indication: Asthma
  6. IPRATROPIUM [Suspect]
     Active Substance: IPRATROPIUM
     Route: 065
  7. IPRATROPIUM [Suspect]
     Active Substance: IPRATROPIUM
     Route: 065
  8. IPRATROPIUM [Suspect]
     Active Substance: IPRATROPIUM
  9. EPINEPHRINE [Suspect]
     Active Substance: EPINEPHRINE
     Indication: Asthma
  10. EPINEPHRINE [Suspect]
     Active Substance: EPINEPHRINE
     Route: 030
  11. EPINEPHRINE [Suspect]
     Active Substance: EPINEPHRINE
     Route: 030
  12. EPINEPHRINE [Suspect]
     Active Substance: EPINEPHRINE
  13. DUONEB [Suspect]
     Active Substance: ALBUTEROL SULFATE\IPRATROPIUM BROMIDE
     Indication: Asthma
  14. DUONEB [Suspect]
     Active Substance: ALBUTEROL SULFATE\IPRATROPIUM BROMIDE
     Route: 065
  15. DUONEB [Suspect]
     Active Substance: ALBUTEROL SULFATE\IPRATROPIUM BROMIDE
     Route: 065
  16. DUONEB [Suspect]
     Active Substance: ALBUTEROL SULFATE\IPRATROPIUM BROMIDE
  17. ALBUTEROL [Suspect]
     Active Substance: ALBUTEROL
     Indication: Asthma
  18. ALBUTEROL [Suspect]
     Active Substance: ALBUTEROL
     Route: 055
  19. ALBUTEROL [Suspect]
     Active Substance: ALBUTEROL
     Route: 055
  20. ALBUTEROL [Suspect]
     Active Substance: ALBUTEROL
  21. MAGNESIUM [Concomitant]
     Active Substance: MAGNESIUM
     Indication: Product used for unknown indication
  22. MAGNESIUM [Concomitant]
     Active Substance: MAGNESIUM
     Route: 042
  23. MAGNESIUM [Concomitant]
     Active Substance: MAGNESIUM
     Route: 042
  24. MAGNESIUM [Concomitant]
     Active Substance: MAGNESIUM

REACTIONS (3)
  - Supraventricular tachycardia [Recovered/Resolved]
  - Drug ineffective [Unknown]
  - Off label use [Unknown]
